FAERS Safety Report 8251627-0 (Version None)
Quarter: 2012Q2

REPORT INFORMATION
  Report Type: 
  Country: None (occurrence: None)
  Receive Date: 20120402
  Receipt Date: 20120321
  Transmission Date: 20120825
  Serious: Yes (Hospitalization)
  Sender: FDA-Public Use
  Company Number: CO-ELI_LILLY_AND_COMPANY-CO201203007074

PATIENT
  Age: 58 Year
  Sex: Male

DRUGS (4)
  1. LOSARTAN POTASSIUM [Concomitant]
     Dosage: UNK
  2. COUMADIN [Concomitant]
     Dosage: UNK
  3. LANTUS [Concomitant]
     Dosage: UNK
  4. HUMALOG [Suspect]
     Indication: TYPE 2 DIABETES MELLITUS
     Dosage: 4 U, QD
     Route: 058
     Dates: start: 20120201, end: 20120301

REACTIONS (1)
  - URINARY TRACT INFECTION [None]
